FAERS Safety Report 25501881 (Version 1)
Quarter: 2025Q3

REPORT INFORMATION
  Report Type: Spontaneous
  Country: CN (occurrence: CN)
  Receive Date: 20250702
  Receipt Date: 20250702
  Transmission Date: 20251020
  Serious: Yes (Disabling)
  Sender: Haleon PLC
  Company Number: CN-HALEON-2249944

PATIENT
  Age: 61 Year
  Sex: Male

DRUGS (2)
  1. IBUPROFEN [Suspect]
     Active Substance: IBUPROFEN
     Indication: Stomatitis
     Dosage: 0.3G/2 TIMES/DAY
     Route: 048
     Dates: start: 20250616, end: 20250618
  2. METRONIDAZOLE [Suspect]
     Active Substance: METRONIDAZOLE
     Indication: Stomatitis
     Route: 048
     Dates: start: 20250616, end: 20250618

REACTIONS (5)
  - Hypoacusis [Recovering/Resolving]
  - Dizziness [Recovering/Resolving]
  - Tinnitus [Recovering/Resolving]
  - Ear discomfort [Recovering/Resolving]
  - Nausea [Recovering/Resolving]

NARRATIVE: CASE EVENT DATE: 20250618
